FAERS Safety Report 19032722 (Version 1)
Quarter: 2021Q1

REPORT INFORMATION
  Report Type: Spontaneous
  Country: GB (occurrence: GB)
  Receive Date: 20210319
  Receipt Date: 20210319
  Transmission Date: 20210420
  Serious: Yes (Death, Other)
  Sender: FDA-Public Use
  Company Number: NVSC2021GB062761

PATIENT
  Age: 53 Year
  Sex: Female
  Weight: 63.2 kg

DRUGS (11)
  1. DEXAMETHASONE. [Suspect]
     Active Substance: DEXAMETHASONE
     Indication: DRUG THERAPY
     Dosage: 5 MG, QD (VIA NG)
     Route: 065
     Dates: start: 20210225
  2. MAGNESIUM SULFATE. [Suspect]
     Active Substance: MAGNESIUM SULFATE
     Indication: ELECTROLYTE SUBSTITUTION THERAPY
     Dosage: 5 G, PRN
     Route: 042
     Dates: start: 20210215
  3. ERYTHROMYCIN. [Suspect]
     Active Substance: ERYTHROMYCIN
     Indication: DRUG THERAPY
     Dosage: 250 MG, QID (VIA NG)
     Route: 065
     Dates: start: 20210226
  4. HEPARIN [Suspect]
     Active Substance: HEPARIN SODIUM
     Indication: HAEMOFILTRATION
     Dosage: 625 UNITS/HR (VIA HAEMOFILTER)
     Route: 065
     Dates: start: 20210220
  5. REMIFENTANIL [Suspect]
     Active Substance: REMIFENTANIL
     Indication: SEDATION
     Dosage: 0.27 MCG/KG/MIN
     Route: 065
     Dates: start: 20210224
  6. NORADRENALINE [Suspect]
     Active Substance: NOREPINEPHRINE
     Indication: BLOOD PRESSURE MEASUREMENT
     Dosage: VARIABLE CONTINUOUS IV
     Route: 042
     Dates: start: 20210218
  7. METOCLOPRAMIDE. [Suspect]
     Active Substance: METOCLOPRAMIDE
     Indication: DRUG THERAPY
     Dosage: UNK
     Route: 042
     Dates: start: 20210225
  8. PROPOFOL. [Suspect]
     Active Substance: PROPOFOL
     Indication: SEDATIVE THERAPY
     Dosage: 30 MG (IV FOLLOWED BY 20?30MG)
     Route: 042
     Dates: start: 20210228
  9. LINEZOLID. [Suspect]
     Active Substance: LINEZOLID
     Indication: FLUID REPLACEMENT
     Dosage: 600 MG, BID
     Route: 042
     Dates: start: 20210224
  10. TINZAPARIN [Suspect]
     Active Substance: TINZAPARIN
     Indication: PROPHYLAXIS
     Dosage: 6000 IU, BID
     Route: 058
     Dates: start: 20210215
  11. MEROPENEM. [Suspect]
     Active Substance: MEROPENEM
     Indication: FLUID REPLACEMENT
     Dosage: 1 G, BID
     Route: 042
     Dates: start: 20210219

REACTIONS (2)
  - Cardiac arrest [Fatal]
  - Anaphylactic reaction [Unknown]

NARRATIVE: CASE EVENT DATE: 20210228
